FAERS Safety Report 7939948-X (Version None)
Quarter: 2011Q4

REPORT INFORMATION
  Report Type: 
  Country: None (occurrence: None)
  Receive Date: 20111125
  Receipt Date: 20111122
  Transmission Date: 20120403
  Serious: Yes (Other)
  Sender: FDA-Public Use
  Company Number: PHEH2011US010003

PATIENT
  Sex: Male

DRUGS (4)
  1. IMITREX [Concomitant]
  2. LEVOCETIRIZINE DIHYDROCHLORIDE [Concomitant]
  3. RECLAST [Suspect]
     Dosage: UNK UKN, UNK
     Route: 042
     Dates: start: 20090601
  4. ASPIRIN [Concomitant]

REACTIONS (3)
  - TOOTH LOSS [None]
  - ORAL PAIN [None]
  - SPEECH DISORDER [None]
